FAERS Safety Report 8111237-2 (Version None)
Quarter: 2012Q1

REPORT INFORMATION
  Report Type: 
  Country: None (occurrence: None)
  Receive Date: 20120203
  Receipt Date: 20110708
  Transmission Date: 20120608
  Serious: Yes (Other)
  Sender: FDA-Public Use
  Company Number: US-GLAXOSMITHKLINE-A0936059A

PATIENT
  Age: 63 Year
  Sex: Female

DRUGS (10)
  1. BONE-UP [Concomitant]
  2. CLONAZEPAM [Concomitant]
  3. ALPHAGAN [Concomitant]
  4. MULTI-VITAMIN [Concomitant]
  5. VITAMIN D [Concomitant]
  6. LAMICTAL [Suspect]
     Indication: ANTIDEPRESSANT THERAPY
     Dosage: 50MG PER DAY
     Route: 048
     Dates: start: 20110530, end: 20110616
  7. TRAZODONE HCL [Concomitant]
  8. TRAVATAN [Concomitant]
  9. CYMBALTA [Concomitant]
  10. FISH OIL [Concomitant]

REACTIONS (9)
  - MYALGIA [None]
  - RASH MORBILLIFORM [None]
  - STEVENS-JOHNSON SYNDROME [None]
  - PRURITUS [None]
  - SKIN EXFOLIATION [None]
  - SKIN DISCOLOURATION [None]
  - RASH GENERALISED [None]
  - MALAISE [None]
  - SUNBURN [None]
